FAERS Safety Report 22922004 (Version 2)
Quarter: 2024Q3

REPORT INFORMATION
  Report Type: Spontaneous
  Country: US (occurrence: US)
  Receive Date: 20230908
  Receipt Date: 20240923
  Transmission Date: 20241016
  Serious: No
  Sender: Unknown Manufacturer
  Company Number: US-MELINTA THERAPEUTICS, LLC-US-MLNT-23-00418

PATIENT
  Age: 73 Year
  Sex: Female

DRUGS (4)
  1. ORBACTIV [Suspect]
     Active Substance: ORITAVANCIN
     Indication: Cellulitis
     Dosage: 1200 MILLIGRAM, SINGLE
     Route: 041
     Dates: start: 20230718, end: 20230718
  2. TYLENOL [Concomitant]
     Active Substance: ACETAMINOPHEN
     Indication: Premedication
     Dosage: 1 GRAM
     Dates: start: 20230718, end: 20230718
  3. BENADRYL [Concomitant]
     Active Substance: DIPHENHYDRAMINE HYDROCHLORIDE
     Indication: Premedication
     Dosage: 25 MILLIGRAM
     Route: 042
     Dates: start: 20230718, end: 20230718
  4. CEFEPIME [Concomitant]
     Active Substance: CEFEPIME HYDROCHLORIDE
     Indication: Product used for unknown indication
     Dosage: 2 GRAM, Q8H

REACTIONS (4)
  - Discomfort [Recovered/Resolved]
  - Erythema [Recovered/Resolved]
  - Rash [Recovered/Resolved]
  - Pruritus [Recovered/Resolved]

NARRATIVE: CASE EVENT DATE: 20230718
